FAERS Safety Report 25159890 (Version 1)
Quarter: 2025Q2

REPORT INFORMATION
  Report Type: Report from Study
  Country: CA (occurrence: CA)
  Receive Date: 20250404
  Receipt Date: 20250404
  Transmission Date: 20250716
  Serious: Yes (Hospitalization)
  Sender: ABBVIE
  Company Number: CA-ABBVIE-6204065

PATIENT
  Age: 73 Year
  Sex: Male

DRUGS (1)
  1. RINVOQ [Suspect]
     Active Substance: UPADACITINIB
     Indication: Crohn^s disease
     Dosage: FORM STRENGTH: 15 MILLIGRAM
     Route: 048
     Dates: end: 2024

REACTIONS (6)
  - Oral fungal infection [Unknown]
  - Peripheral swelling [Unknown]
  - Fatigue [Unknown]
  - Decreased appetite [Unknown]
  - Pyrexia [Unknown]
  - Dehydration [Unknown]

NARRATIVE: CASE EVENT DATE: 20240101
